FAERS Safety Report 5216817-X (Version None)
Quarter: 2007Q1

REPORT INFORMATION
  Report Type: 
  Country: None (occurrence: None)
  Receive Date: 20070119
  Receipt Date: 20070105
  Transmission Date: 20070707
  Serious: Yes (Hospitalization)
  Sender: FDA-Public Use
  Company Number: 163-20785-06060076

PATIENT
  Age: 71 Year
  Sex: Male

DRUGS (8)
  1. THALOMID [Suspect]
     Indication: MULTIPLE MYELOMA
     Dosage: 100 MG, QHS, ORAL
     Route: 048
     Dates: start: 20060302, end: 20060314
  2. DEXAMETHASONE TAB [Concomitant]
  3. BACTRIM DS [Concomitant]
  4. WARFARIN SODIUM [Concomitant]
  5. ARANESP [Concomitant]
  6. ZOMETA [Concomitant]
  7. DARBEPOIETIN ALFA [Concomitant]
  8. ZOLDEDRONIC ACID (ZOLDEDRONIC ACID) [Concomitant]

REACTIONS (15)
  - ANAEMIA [None]
  - BLAST CELL PROLIFERATION [None]
  - BLOOD CALCIUM DECREASED [None]
  - BLOOD LACTATE DEHYDROGENASE INCREASED [None]
  - BLOOD PHOSPHORUS INCREASED [None]
  - BLOOD POTASSIUM INCREASED [None]
  - BLOOD URIC ACID INCREASED [None]
  - CYTOGENETIC ANALYSIS ABNORMAL [None]
  - GENERALISED OEDEMA [None]
  - HAEMODIALYSIS [None]
  - HYPERCALCAEMIA [None]
  - MARROW HYPERPLASIA [None]
  - MENTAL IMPAIRMENT [None]
  - RENAL FAILURE ACUTE [None]
  - TUMOUR LYSIS SYNDROME [None]
